FAERS Safety Report 4861450-2 (Version None)
Quarter: 2005Q4

REPORT INFORMATION
  Report Type: 
  Country: None (occurrence: None)
  Receive Date: 20051220
  Receipt Date: 20051209
  Transmission Date: 20060501
  Serious: Yes (Other)
  Sender: FDA-Public Use
  Company Number: CA-BRISTOL-MYERS SQUIBB COMPANY-13220884

PATIENT
  Age: 44 Year
  Sex: Female

DRUGS (6)
  1. TEQUIN [Suspect]
     Route: 048
  2. CLINDAMYCIN [Concomitant]
  3. FUROSEMIDE [Concomitant]
  4. HEPARIN [Concomitant]
  5. METOCLOPRAMIDE HCL [Concomitant]
  6. RANITIDINE [Concomitant]

REACTIONS (1)
  - HYPERGLYCAEMIA [None]
